FAERS Safety Report 9176586 (Version 1)
Quarter: 2013Q1

REPORT INFORMATION
  Report Type: Spontaneous
  Country: US (occurrence: None)
  Receive Date: 20130320
  Receipt Date: 20130320
  Transmission Date: 20140127
  Serious: Yes (Other)
  Sender: FDA-Public Use
  Company Number: None

PATIENT
  Age: 27 Year
  Sex: Male
  Weight: 88 kg

DRUGS (1)
  1. FLUTICASONE [Suspect]
     Route: 045

REACTIONS (4)
  - Weight increased [None]
  - Bone disorder [None]
  - Skin atrophy [None]
  - Skin wrinkling [None]
